FAERS Safety Report 7811954-5 (Version None)
Quarter: 2011Q4

REPORT INFORMATION
  Report Type: 
  Country: None (occurrence: None)
  Receive Date: 20111013
  Receipt Date: 20111005
  Transmission Date: 20120403
  Serious: Yes (Hospitalization, Other)
  Sender: FDA-Public Use
  Company Number: PHEH2009US18125

PATIENT
  Sex: Male

DRUGS (7)
  1. ZOFRAN [Concomitant]
  2. DOCUSATE [Concomitant]
  3. ALBUTEROL SULFATE [Concomitant]
  4. PERCOCET [Concomitant]
  5. ZOMETA [Suspect]
  6. FAMOTIDINE [Concomitant]
  7. ACETAMINOPHEN [Concomitant]

REACTIONS (28)
  - OSTEONECROSIS OF JAW [None]
  - ACUTE RESPIRATORY FAILURE [None]
  - LUNG NEOPLASM MALIGNANT [None]
  - METASTASES TO LIVER [None]
  - ANXIETY [None]
  - OVERDOSE [None]
  - LYMPHADENOPATHY [None]
  - SINUS TACHYCARDIA [None]
  - PNEUMONIA [None]
  - NASAL CONGESTION [None]
  - EMOTIONAL DISTRESS [None]
  - INFECTION [None]
  - PULMONARY EMBOLISM [None]
  - LYMPHADENOPATHY MEDIASTINAL [None]
  - BRONCHOSTENOSIS [None]
  - PAIN [None]
  - DEFORMITY [None]
  - CYST [None]
  - DYSPNOEA [None]
  - METASTASES TO BONE [None]
  - PERICARDIAL EFFUSION [None]
  - INJURY [None]
  - PHYSICAL DISABILITY [None]
  - DEEP VEIN THROMBOSIS [None]
  - PNEUMOTHORAX [None]
  - CHEST PAIN [None]
  - PULMONARY OEDEMA [None]
  - PLEURAL EFFUSION [None]
